FAERS Safety Report 10078862 (Version 1)
Quarter: 2014Q2

REPORT INFORMATION
  Report Type: Spontaneous
  Country: IN (occurrence: IN)
  Receive Date: 20140415
  Receipt Date: 20140415
  Transmission Date: 20141212
  Serious: Yes (Other)
  Sender: FDA-Public Use
  Company Number: IN-GE HEALTHCARE MEDICAL DIAGNOSTICS-OMPQ-PR-1404S-0374

PATIENT
  Age: 32 Year
  Sex: Female
  Weight: 62 kg

DRUGS (2)
  1. OMNIPAQUE [Suspect]
     Indication: PRODUCT USED FOR UNKNOWN INDICATION
     Route: 042
     Dates: start: 20140404, end: 20140404
  2. OMNIPAQUE [Suspect]
     Indication: DIAGNOSTIC PROCEDURE

REACTIONS (4)
  - Chills [Recovered/Resolved]
  - Discomfort [Recovered/Resolved]
  - Pyrexia [Recovered/Resolved]
  - Hypotension [Recovered/Resolved]
